FAERS Safety Report 5308637-2 (Version None)
Quarter: 2007Q2

REPORT INFORMATION
  Report Type: 
  Country: None (occurrence: None)
  Receive Date: 20070426
  Receipt Date: 20070419
  Transmission Date: 20071010
  Serious: Yes (Hospitalization)
  Sender: FDA-Public Use
  Company Number: HQWYE728620APR07

PATIENT
  Sex: Female
  Weight: 59.93 kg

DRUGS (1)
  1. ADVIL [Suspect]
     Indication: ARTHRALGIA
     Dosage: 2 LIQUI-GELS 2 TO 3 TIMES DAILY AS DIRECTED BY PHYSICIAN
     Route: 048
     Dates: start: 20070101, end: 20070413

REACTIONS (4)
  - ASTHENIA [None]
  - BLOOD SODIUM DECREASED [None]
  - PALPITATIONS [None]
  - TREMOR [None]
